FAERS Safety Report 8962339 (Version 1)
Quarter: 2012Q4

REPORT INFORMATION
  Report Type: Spontaneous
  Country: US (occurrence: None)
  Receive Date: 20121211
  Receipt Date: 20121211
  Transmission Date: 20130627
  Serious: Yes (Other)
  Sender: FDA-Public Use
  Company Number: None

PATIENT
  Sex: Male
  Weight: 102.97 kg

DRUGS (2)
  1. DARVOCET A500 [Suspect]
     Indication: BACK SURGERY
     Dosage: 90 pills 3 x daily
     Dates: start: 198906, end: 199006
  2. PERCOCET 10/325 1 [Suspect]
     Indication: BACK SURGERY
     Dosage: 90 pills 3x daily
     Dates: start: 199007, end: 199310

REACTIONS (9)
  - Hypopnoea [None]
  - Heart rate decreased [None]
  - Dizziness [None]
  - Chest pain [None]
  - Dyspnoea [None]
  - Confusional state [None]
  - Thinking abnormal [None]
  - Decreased appetite [None]
  - Eye colour change [None]
